FAERS Safety Report 4365936-9 (Version None)
Quarter: 2004Q2

REPORT INFORMATION
  Report Type: 
  Country: None (occurrence: None)
  Receive Date: 20040520
  Receipt Date: 20040506
  Transmission Date: 20050107
  Serious: Yes (Hospitalization)
  Sender: FDA-Public Use
  Company Number: FR-JNJFOC-20040501286

PATIENT
  Age: 41 Year
  Sex: Female
  Weight: 47 kg

DRUGS (9)
  1. GYNO PEVERYL (ECONAZOLE NITRATE) OVULE [Suspect]
     Indication: FUNGAL INFECTION
     Dosage: 1 DOSE(S), 1 IN1 DAY, VAGINAL
     Route: 067
     Dates: start: 20030227
  2. GYNO PEVERYL (ECONAZOLE NITRATE) OVULE [Suspect]
     Indication: FUNGAL INFECTION
     Dosage: 1 DOSE(S), 1 IN1 DAY, VAGINAL
     Route: 067
     Dates: start: 20040201
  3. COLPOSEPTINE (COLPOSEPTINE) [Suspect]
     Indication: DRUG USE FOR UNKNOWN INDICATION
     Dosage: VAGINAL
     Route: 067
  4. ACETAMINOPHEN [Suspect]
     Indication: DRUG USE FOR UNKNOWN INDICATION
     Dosage: ORAL
     Route: 048
     Dates: start: 20031101
  5. POLYGYNAX (POLYGYNAX) [Suspect]
     Indication: DRUG USE FOR UNKNOWN INDICATION
     Dosage: VAGINAL
     Route: 067
     Dates: start: 20030227
  6. KETOPROFEN [Suspect]
     Indication: DRUG USE FOR UNKNOWN INDICATION
     Dosage: ORAL
     Route: 048
     Dates: start: 20031101
  7. METHOTREXATE [Suspect]
     Indication: JUVENILE ARTHRITIS
     Dosage: 15 MG, 1 IN 1 WEEK
     Dates: start: 20030701, end: 20040312
  8. ACETAMINOPHEN [Concomitant]
  9. LAMALINE (LAMALINE) [Concomitant]

REACTIONS (14)
  - ASTHENIA [None]
  - CONDITION AGGRAVATED [None]
  - CONJUNCTIVITIS [None]
  - CYTOLYTIC HEPATITIS [None]
  - DERMATITIS EXFOLIATIVE [None]
  - DRUG INTERACTION [None]
  - EYELID OEDEMA [None]
  - GENERAL PHYSICAL HEALTH DETERIORATION [None]
  - INFLAMMATION [None]
  - PHARYNGITIS [None]
  - PRURITUS [None]
  - PYREXIA [None]
  - SERUM FERRITIN INCREASED [None]
  - WEIGHT DECREASED [None]
